FAERS Safety Report 19571336 (Version 1)
Quarter: 2021Q3

REPORT INFORMATION
  Report Type: Spontaneous
  Country: US (occurrence: US)
  Receive Date: 20210716
  Receipt Date: 20210716
  Transmission Date: 20211014
  Serious: Yes (Other)
  Sender: FDA-Public Use
  Company Number: US-ASTRAZENECA-2021A616054

PATIENT
  Age: 36 Year
  Sex: Female

DRUGS (3)
  1. FASLODEX [Suspect]
     Active Substance: FULVESTRANT
     Indication: BREAST CANCER METASTATIC
     Route: 030
     Dates: start: 20190901
  2. LUPRON [Suspect]
     Active Substance: LEUPROLIDE ACETATE
     Indication: BREAST CANCER METASTATIC
     Route: 065
     Dates: start: 20190901
  3. IBRANCE [Suspect]
     Active Substance: PALBOCICLIB
     Indication: BREAST CANCER METASTATIC
     Route: 048
     Dates: start: 20190901

REACTIONS (6)
  - Fatigue [Unknown]
  - Mood altered [Unknown]
  - Liver disorder [Unknown]
  - Weight decreased [Unknown]
  - Vomiting [Unknown]
  - Exposure during pregnancy [Unknown]
